FAERS Safety Report 5962212-5 (Version None)
Quarter: 2008Q4

REPORT INFORMATION
  Report Type: 
  Country: None (occurrence: None)
  Receive Date: 20081121
  Receipt Date: 20081113
  Transmission Date: 20090506
  Serious: Yes (Other)
  Sender: FDA-Public Use
  Company Number: PHHY2008GR28355

PATIENT
  Age: 66 Year
  Sex: Male

DRUGS (2)
  1. EXELON [Suspect]
     Dosage: 4.6 MG
     Route: 062
  2. EXELON [Suspect]
     Dosage: 9.5 MG
     Route: 062
     Dates: end: 20081112

REACTIONS (3)
  - ERYTHEMA [None]
  - PRURITUS [None]
  - SKIN HAEMORRHAGE [None]
